FAERS Safety Report 16525254 (Version 1)
Quarter: 2019Q3

REPORT INFORMATION
  Report Type: Spontaneous
  Country: US (occurrence: US)
  Receive Date: 20190702
  Receipt Date: 20190702
  Transmission Date: 20191004
  Serious: Yes (Hospitalization, Other)
  Sender: FDA-Public Use
  Company Number: US-NOVOPROD-670013

PATIENT
  Sex: Male

DRUGS (1)
  1. NOVOLOG [Suspect]
     Active Substance: INSULIN ASPART
     Indication: TYPE 2 DIABETES MELLITUS
     Dosage: 3-4 TIMES A DAY DEPENDING ON THE READING
     Route: 058

REACTIONS (3)
  - Vascular rupture [Recovered/Resolved]
  - Diabetic hyperglycaemic coma [Recovered/Resolved]
  - Type 1 diabetes mellitus [Not Recovered/Not Resolved]
